FAERS Safety Report 20411355 (Version 1)
Quarter: 2022Q1

REPORT INFORMATION
  Report Type: Spontaneous
  Country: US (occurrence: US)
  Receive Date: 20220201
  Receipt Date: 20220201
  Transmission Date: 20220423
  Serious: Yes (Other)
  Sender: FDA-Public Use
  Company Number: US-BAYER-2022A013677

PATIENT
  Age: 52 Year
  Sex: Female

DRUGS (3)
  1. ALKA-SELTZER PLUS COLD AND COUGH FORMULA [Suspect]
     Active Substance: ACETAMINOPHEN\CHLORPHENIRAMINE\DEXTROMETHORPHAN\PHENYLEPHRINE
     Indication: Hypersensitivity
     Dosage: 4 DF, QD
     Route: 048
     Dates: start: 20220123, end: 20220125
  2. ALKA-SELTZER PLUS COLD AND COUGH FORMULA [Suspect]
     Active Substance: ACETAMINOPHEN\CHLORPHENIRAMINE\DEXTROMETHORPHAN\PHENYLEPHRINE
     Indication: Nasopharyngitis
  3. ALKA-SELTZER PLUS SEVERE ALLERGY SINUS CONGESTION AND HEADACHE FORMULA [Concomitant]
     Active Substance: ACETAMINOPHEN\DOXYLAMINE SUCCINATE\PHENYLEPHRINE HYDROCHLORIDE

REACTIONS (2)
  - Foreign body in throat [None]
  - Product use complaint [None]

NARRATIVE: CASE EVENT DATE: 20220123
